FAERS Safety Report 16179770 (Version 11)
Quarter: 2022Q4

REPORT INFORMATION
  Report Type: Report from Study
  Country: CN (occurrence: None)
  Receive Date: 20190410
  Receipt Date: 20221003
  Transmission Date: 20230113
  Serious: Yes (Life-Threatening)
  Sender: FDA-Public Use
  Company Number: CN-ROCHE-2297509

PATIENT
  Age: 63 Year
  Sex: Female
  Weight: 72 kg

DRUGS (15)
  1. TOCILIZUMAB [Suspect]
     Active Substance: TOCILIZUMAB
     Indication: Rheumatoid arthritis
     Dosage: DATE OF MOST RECENT DOSE OF BLINDED TOCILIZUMAB PRIOR TO NEUTROPHILIC GRANULOAYTOPENIA ONSET: ON 13/
     Route: 058
     Dates: start: 20180105
  2. METHOTREXATE (METHOTREXATE SODIUM) [Suspect]
     Active Substance: METHOTREXATE SODIUM
     Indication: Rheumatoid arthritis
     Dosage: DATE OF MOST RECENT DOSE OF BLINDED METHOTREXATE PRIOR TO THE ONSET OF NEUTROPHILIC GRANULOAYTOPENIA
     Route: 048
     Dates: start: 20180111
  3. TOCILIZUMAB [Suspect]
     Active Substance: TOCILIZUMAB
     Indication: Rheumatoid arthritis
     Dosage: DATE OF MOST RECENT DOSE OF OPEN LABEL TOCILIZUMAB PRIOR TO NEUTROPHILIC GRANULOAYTOPENIA ONSET: 22/
     Route: 058
     Dates: start: 20180425
  4. METHOTREXATE [Suspect]
     Active Substance: METHOTREXATE
     Indication: Rheumatoid arthritis
     Dosage: DATE OF MOST RECENT DOSE (7.5 MG) OF OEN LABEL METHOTREXATE PRIOR TO NEUTROPHILIC GRANULOAYTOPENIA O
     Route: 048
     Dates: start: 20180503, end: 20180816
  5. FOLATE SODIUM [Concomitant]
     Active Substance: FOLATE SODIUM
     Dosage: NOT FOR RHEUMATOID ARTHRITIS
     Dates: start: 20171221
  6. FELODIPINE [Concomitant]
     Active Substance: FELODIPINE
     Indication: Hypertension
     Dosage: NOT FOR RHEUMATOID ARTHRITIS
     Dates: start: 201610
  7. METHYLPREDNISOLONE [Concomitant]
     Active Substance: METHYLPREDNISOLONE
     Indication: Rheumatoid arthritis
     Route: 048
     Dates: start: 20180720
  8. LEUCOGEN (CHINA) [Concomitant]
     Indication: Lymphocytosis
     Dosage: NOT FOR RHEUMATOID ARTHRITIS
     Dates: start: 20180720
  9. CEFDINIR [Concomitant]
     Active Substance: CEFDINIR
     Indication: Urinary tract infection
     Dates: start: 20180806, end: 20180815
  10. LEVOFLOXACIN MESYLATE [Concomitant]
     Active Substance: LEVOFLOXACIN MESYLATE
     Indication: Asymptomatic bacteriuria
     Dosage: NOT FOR RHEUMATOID ARTHRITIS
     Dates: start: 20180806, end: 20180815
  11. BURNET ROOT LEUKOPOIETIC [Concomitant]
     Indication: White blood cell count increased
     Dates: start: 20190415
  12. BURNET ROOT LEUKOPOIETIC [Concomitant]
     Dates: start: 20190412
  13. HYDROCORTISONE SODIUM SUCCINATE [Concomitant]
     Active Substance: HYDROCORTISONE SODIUM SUCCINATE
     Indication: Rheumatoid arthritis
     Route: 050
     Dates: start: 20190408, end: 20190408
  14. LIDOCAINE HYDROCHLORIDE [Concomitant]
     Active Substance: LIDOCAINE HYDROCHLORIDE
     Indication: Local anaesthesia
     Dates: start: 20190404, end: 20190404
  15. LIDOCAINE HYDROCHLORIDE [Concomitant]
     Active Substance: LIDOCAINE HYDROCHLORIDE
     Dates: start: 20190410, end: 20190410

REACTIONS (1)
  - Agranulocytosis [Recovered/Resolved]

NARRATIVE: CASE EVENT DATE: 20180831
